FAERS Safety Report 17864676 (Version 1)
Quarter: 2020Q2

REPORT INFORMATION
  Report Type: Spontaneous
  Country: US (occurrence: US)
  Receive Date: 20200604
  Receipt Date: 20200604
  Transmission Date: 20200714
  Serious: Yes (Hospitalization)
  Sender: FDA-Public Use
  Company Number: None

PATIENT
  Sex: Female

DRUGS (6)
  1. METHOTREXATE TAB [Concomitant]
     Active Substance: METHOTREXATE
  2. CALCIUM 600 TAB [Concomitant]
  3. FOLIC ACID TAB [Concomitant]
  4. ROSUSVASTATIN TAB [Concomitant]
  5. ORENCIA [Suspect]
     Active Substance: ABATACEPT
     Indication: RHEUMATOID ARTHRITIS
     Route: 058
  6. PREDNISONE TAB [Concomitant]
     Active Substance: PREDNISONE

REACTIONS (3)
  - Therapy interrupted [None]
  - Condition aggravated [None]
  - Insurance issue [None]
